FAERS Safety Report 21389199 (Version 1)
Quarter: 2022Q3

REPORT INFORMATION
  Report Type: Spontaneous
  Country: ES (occurrence: ES)
  Receive Date: 20220929
  Receipt Date: 20220929
  Transmission Date: 20221027
  Serious: Yes (Other)
  Sender: FDA-Public Use
  Company Number: None

PATIENT
  Age: 54 Year
  Sex: Female

DRUGS (3)
  1. TOPIRAMATE [Interacting]
     Active Substance: TOPIRAMATE
     Indication: Product used for unknown indication
     Dosage: THERAPY END DATE : NOT ASKED, UNIT DOSE : 50 MG, FREQUENCY TIME : 12 HOURS
     Dates: start: 2019
  2. ZELDOX [Interacting]
     Active Substance: ZIPRASIDONE
     Indication: Schizophrenia
     Dosage: 80 MG HARD CAPSULES, 56 CAPSULES, THERAPY END DATE : NOT ASKED, UNIT DOSE : 60 MG, FREQUENCY TIME :
     Dates: start: 20220818
  3. DIAZEPAM [Interacting]
     Active Substance: DIAZEPAM
     Indication: Product used for unknown indication
     Dosage: DIAZEPAM (730A), THERAPY DATE : NOT ASKED, UNIT DOSE : 10 MG, FREQUENCY TIME : 24 HOURS
     Dates: start: 2019

REACTIONS (4)
  - Disturbance in attention [Recovering/Resolving]
  - Dizziness [Recovering/Resolving]
  - Retrograde amnesia [Recovering/Resolving]
  - Drug interaction [Unknown]

NARRATIVE: CASE EVENT DATE: 20220819
